FAERS Safety Report 4819950-7 (Version None)
Quarter: 2005Q4

REPORT INFORMATION
  Report Type: 
  Country: None (occurrence: None)
  Receive Date: 20051102
  Receipt Date: 20051017
  Transmission Date: 20060501
  Serious: Yes (Hospitalization)
  Sender: FDA-Public Use
  Company Number: S05-FRA-03996-01

PATIENT
  Age: 70 Year
  Sex: Female

DRUGS (12)
  1. SEROPLEX (ESCITALOPRAM) [Suspect]
     Dates: start: 20050501, end: 20050831
  2. PANOS (TETRAZEPAM) [Suspect]
     Dates: start: 20050721, end: 20050831
  3. MEPRONIZINE [Concomitant]
  4. AMARYL [Concomitant]
  5. VISCERALGINE FORTE [Concomitant]
  6. KARDEGIC (ACETYLSALICYLATE LYSINE) [Concomitant]
  7. OMEPRAZOLE [Concomitant]
  8. VASTAREL [Concomitant]
  9. CALCIUM W/COLECALCIFEROL (CALCIUM W/COLECALCIFEROL) [Concomitant]
  10. SECTRAL [Concomitant]
  11. VICTAN (ETHYL LOFLAZEPATE) [Concomitant]
  12. ATORVASTATIN CALCIUM [Concomitant]

REACTIONS (4)
  - AGRANULOCYTOSIS [None]
  - PYREXIA [None]
  - SELF-MEDICATION [None]
  - WHITE BLOOD CELL COUNT DECREASED [None]
